FAERS Safety Report 22920794 (Version 2)
Quarter: 2023Q4

REPORT INFORMATION
  Report Type: Spontaneous
  Country: DE (occurrence: DE)
  Receive Date: 20230908
  Receipt Date: 20231208
  Transmission Date: 20240110
  Serious: Yes (Hospitalization, Other)
  Sender: FDA-Public Use
  Company Number: DE-009507513-2309DEU001524

PATIENT
  Sex: Female

DRUGS (1)
  1. PEMBROLIZUMAB [Suspect]
     Active Substance: PEMBROLIZUMAB
     Indication: Triple negative breast cancer
     Dosage: UNK

REACTIONS (5)
  - Type 1 diabetes mellitus [Unknown]
  - Malignant neoplasm progression [Unknown]
  - Ketoacidosis [Unknown]
  - Metabolic disorder [Unknown]
  - Drug ineffective [Unknown]
